FAERS Safety Report 12674033 (Version 1)
Quarter: 2016Q3

REPORT INFORMATION
  Report Type: Spontaneous
  Country: NL (occurrence: NL)
  Receive Date: 20160822
  Receipt Date: 20160822
  Transmission Date: 20161109
  Serious: Yes (Disabling)
  Sender: FDA-Public Use
  Company Number: NL-MYLANLABS-2016M1034826

PATIENT

DRUGS (2)
  1. PAROXETINE MYLAN 20 MG FILMOMHULDE TABLETTEN [Suspect]
     Active Substance: PAROXETINE
     Indication: HYPERVENTILATION
  2. PAROXETINE MYLAN 20 MG FILMOMHULDE TABLETTEN [Suspect]
     Active Substance: PAROXETINE
     Indication: ANXIETY
     Dosage: 10 MG, QD (0.5 TABLET)
     Route: 065
     Dates: start: 2002

REACTIONS (10)
  - Vomiting [Recovered/Resolved]
  - Malaise [Recovered/Resolved]
  - Gastrointestinal pain [Recovered/Resolved]
  - Diarrhoea [Recovered/Resolved]
  - Paraesthesia [Not Recovered/Not Resolved]
  - Hallucination [Recovered/Resolved]
  - Photopsia [Recovered/Resolved]
  - Malaise [Recovered/Resolved]
  - Withdrawal syndrome [Not Recovered/Not Resolved]
  - Activities of daily living impaired [Unknown]

NARRATIVE: CASE EVENT DATE: 2005
